FAERS Safety Report 9451257 (Version 1)
Quarter: 2013Q3

REPORT INFORMATION
  Report Type: Report from Study
  Country: CO (occurrence: CO)
  Receive Date: 20130809
  Receipt Date: 20130809
  Transmission Date: 20140515
  Serious: Yes (Death)
  Sender: FDA-Public Use
  Company Number: CO-ASTRAZENECA-2013SE61387

PATIENT
  Age: 74 Year
  Sex: Female

DRUGS (6)
  1. BRILINTA [Suspect]
     Indication: ACUTE CORONARY SYNDROME
     Route: 048
     Dates: start: 20130719
  2. ROSUVASTATIN [Concomitant]
     Route: 048
  3. LOSARTAN [Concomitant]
     Route: 048
  4. CARVEDILOL [Concomitant]
     Indication: ACUTE CORONARY SYNDROME
     Route: 048
  5. ESOMEPRAZOLE [Concomitant]
     Route: 048
  6. INSULINE [Concomitant]

REACTIONS (1)
  - Respiratory arrest [Fatal]
